FAERS Safety Report 5049581-8 (Version None)
Quarter: 2006Q2

REPORT INFORMATION
  Report Type: 
  Country: None (occurrence: None)
  Receive Date: 20060614
  Receipt Date: 20060601
  Transmission Date: 20061013
  Serious: No
  Sender: FDA-Public Use
  Company Number: 446555

PATIENT
  Age: 69 Year
  Sex: Female

DRUGS (7)
  1. BONIVA [Suspect]
     Indication: OSTEOPOROSIS
     Dosage: 1 PER MONTH, ORAL
     Route: 048
     Dates: start: 20050915, end: 20051115
  2. BUSPAR [Concomitant]
  3. OXYCONTIN [Concomitant]
  4. ELAVIL [Concomitant]
  5. NEXIUM [Concomitant]
  6. SYNTHROID [Concomitant]
  7. PREMARIN [Concomitant]

REACTIONS (4)
  - GASTROOESOPHAGEAL REFLUX DISEASE [None]
  - HIATUS HERNIA [None]
  - MYALGIA [None]
  - NAUSEA [None]
